FAERS Safety Report 8094323-5 (Version None)
Quarter: 2012Q1

REPORT INFORMATION
  Report Type: 
  Country: None (occurrence: None)
  Receive Date: 20120130
  Receipt Date: 20120125
  Transmission Date: 20120608
  Serious: No
  Sender: FDA-Public Use
  Company Number: US-PFIZER INC-2012021058

PATIENT
  Sex: Female
  Weight: 74.83 kg

DRUGS (2)
  1. CHANTIX [Suspect]
     Indication: SMOKING CESSATION THERAPY
     Dosage: 0.5 MG, DAILY
     Dates: start: 20120101, end: 20120101
  2. CHANTIX [Suspect]
     Dosage: UNK
     Dates: start: 20120101

REACTIONS (7)
  - NAUSEA [None]
  - DYSGEUSIA [None]
  - INCREASED APPETITE [None]
  - THINKING ABNORMAL [None]
  - PAROSMIA [None]
  - MALAISE [None]
  - WEIGHT INCREASED [None]
